FAERS Safety Report 21283173 (Version 4)
Quarter: 2023Q4

REPORT INFORMATION
  Report Type: Spontaneous
  Country: FR (occurrence: FR)
  Receive Date: 20220901
  Receipt Date: 20231006
  Transmission Date: 20240110
  Serious: Yes (Other)
  Sender: FDA-Public Use
  Company Number: None

PATIENT
  Age: 74 Year
  Sex: Female

DRUGS (3)
  1. ULTRAVIST [Suspect]
     Active Substance: IOPROMIDE
     Indication: Computerised tomogram head
     Dosage: 100 ML, ONCE
     Route: 042
     Dates: start: 20220331, end: 20220331
  2. INNOHEP [Suspect]
     Active Substance: TINZAPARIN SODIUM
     Indication: Thrombosis prophylaxis
     Dosage: 14000 IU, QD
     Route: 058
     Dates: start: 20220331, end: 20220404
  3. FLUDEOXYGLUCOSE F-18 [Suspect]
     Active Substance: FLUDEOXYGLUCOSE F-18
     Indication: Positron emission tomogram
     Dosage: 250 MBQ, ONCE
     Route: 042
     Dates: start: 20220331, end: 20220331

REACTIONS (4)
  - Acute kidney injury [Recovered/Resolved]
  - Rash erythematous [Recovered/Resolved]
  - Hypereosinophilic syndrome [Recovered/Resolved]
  - Eosinophilia [Recovered/Resolved]

NARRATIVE: CASE EVENT DATE: 20220403
